FAERS Safety Report 8981351 (Version 1)
Quarter: 2012Q4

REPORT INFORMATION
  Report Type: 
  Country: US (occurrence: US)
  Receive Date: 20121221
  Receipt Date: 20121221
  Transmission Date: 20130627
  Serious: No
  Sender: FDA-Public Use
  Company Number: US-TARO-2012P1002632

PATIENT
  Age: 70 Year
  Sex: Male
  Weight: 88.45 kg

DRUGS (2)
  1. FLUOROURACIL [Suspect]
     Indication: ACNE
     Route: 061
     Dates: start: 1986
  2. BLOOD PRESSURE MEDICATION [Concomitant]

REACTIONS (2)
  - Hypersensitivity [Recovered/Resolved]
  - Off label use [Recovered/Resolved]
